FAERS Safety Report 19130417 (Version 1)
Quarter: 2021Q2

REPORT INFORMATION
  Report Type: Report from Study
  Country: CN (occurrence: CN)
  Receive Date: 20210413
  Receipt Date: 20210413
  Transmission Date: 20210717
  Serious: Yes (Hospitalization)
  Sender: FDA-Public Use
  Company Number: CN-BRISTOL-MYERS SQUIBB COMPANY-BMS-2021-034227

PATIENT
  Age: 65 Year
  Sex: Male

DRUGS (1)
  1. NIVOLUMAB [Suspect]
     Active Substance: NIVOLUMAB
     Indication: GASTRIC CANCER
     Dosage: 140 MILLIGRAM, Q2WK
     Route: 041
     Dates: start: 20210204

REACTIONS (4)
  - Oedema peripheral [Unknown]
  - Immune system disorder [Unknown]
  - Asthenia [Unknown]
  - Cholelithiasis [Unknown]
